FAERS Safety Report 10954522 (Version 2)
Quarter: 2015Q2

REPORT INFORMATION
  Report Type: Spontaneous
  Country: US (occurrence: US)
  Receive Date: 20150325
  Receipt Date: 20150622
  Transmission Date: 20150821
  Serious: No
  Sender: FDA-Public Use
  Company Number: US-GLAXOSMITHKLINE-US2015036882

PATIENT
  Age: 63 Year
  Sex: Female

DRUGS (6)
  1. RELENZA [Suspect]
     Active Substance: ZANAMIVIR
     Indication: INFLUENZA
     Dosage: 2 PUFF(S), QD
     Route: 048
     Dates: start: 20150317
  2. SYNTHROID [Concomitant]
     Active Substance: LEVOTHYROXINE SODIUM
  3. NEURONTIN [Concomitant]
     Active Substance: GABAPENTIN
  4. RELENZA [Suspect]
     Active Substance: ZANAMIVIR
     Dosage: UNK
  5. CLONAZEPAM. [Concomitant]
     Active Substance: CLONAZEPAM
  6. REMERON [Concomitant]
     Active Substance: MIRTAZAPINE

REACTIONS (1)
  - Restless legs syndrome [Not Recovered/Not Resolved]

NARRATIVE: CASE EVENT DATE: 20150317
